FAERS Safety Report 23359648 (Version 2)
Quarter: 2024Q1

REPORT INFORMATION
  Report Type: Spontaneous
  Country: US (occurrence: US)
  Receive Date: 20240103
  Receipt Date: 20240320
  Transmission Date: 20240410
  Serious: No
  Sender: FDA-Public Use
  Company Number: US-SA-SAC20231226000763

PATIENT
  Age: 8 Year
  Sex: Male

DRUGS (1)
  1. DUPIXENT [Suspect]
     Active Substance: DUPILUMAB
     Indication: Dermatitis allergic
     Dosage: 200 MG, QOW
     Route: 058

REACTIONS (5)
  - Dry skin [Unknown]
  - Sleep disorder due to a general medical condition [Unknown]
  - Pruritus [Unknown]
  - Skin exfoliation [Unknown]
  - Injection site pain [Unknown]
